FAERS Safety Report 19957461 (Version 4)
Quarter: 2025Q4

REPORT INFORMATION
  Report Type: Spontaneous
  Country: EU (occurrence: EU)
  Receive Date: 20211014
  Receipt Date: 20251024
  Transmission Date: 20260118
  Serious: Yes (Death, Life-Threatening, Hospitalization, Other)
  Sender: TAKEDA
  Company Number: EU-TAKEDA-2021TUS063339

PATIENT
  Age: 26 Year
  Sex: Female

DRUGS (16)
  1. MESALAMINE [Suspect]
     Active Substance: MESALAMINE
     Indication: Colitis
     Dosage: UNK
  2. MESALAMINE [Suspect]
     Active Substance: MESALAMINE
     Indication: Enterocolitis haemorrhagic
  3. MESALAMINE [Suspect]
     Active Substance: MESALAMINE
     Indication: Immunosuppressant drug therapy
  4. AZATHIOPRINE [Suspect]
     Active Substance: AZATHIOPRINE
     Indication: Enterocolitis haemorrhagic
     Dosage: UNK
  5. AZATHIOPRINE [Suspect]
     Active Substance: AZATHIOPRINE
     Indication: Colitis
  6. AZATHIOPRINE [Suspect]
     Active Substance: AZATHIOPRINE
     Indication: Immunosuppressant drug therapy
  7. SULFAMETHOXAZOLE\TRIMETHOPRIM [Suspect]
     Active Substance: SULFAMETHOXAZOLE\TRIMETHOPRIM
     Indication: Antibiotic prophylaxis
     Dosage: UNK
  8. FOSCAVIR [Suspect]
     Active Substance: FOSCARNET SODIUM
     Indication: Disseminated cytomegaloviral infection
     Dosage: UNK
  9. FOSCAVIR [Suspect]
     Active Substance: FOSCARNET SODIUM
     Indication: Encephalitis cytomegalovirus
  10. CEFOTAXIME [Suspect]
     Active Substance: CEFOTAXIME SODIUM
     Indication: Antibiotic prophylaxis
     Dosage: UNK
  11. CEFOTAXIME [Suspect]
     Active Substance: CEFOTAXIME SODIUM
     Indication: Encephalitis cytomegalovirus
  12. VALACYCLOVIR HYDROCHLORIDE [Suspect]
     Active Substance: VALACYCLOVIR HYDROCHLORIDE
     Indication: Antiviral prophylaxis
     Dosage: UNK
  13. GANCICLOVIR [Suspect]
     Active Substance: GANCICLOVIR
     Indication: Disseminated cytomegaloviral infection
     Dosage: UNK
  14. GANCICLOVIR [Suspect]
     Active Substance: GANCICLOVIR
     Indication: Encephalitis cytomegalovirus
  15. COTRIMOXAZOLE [Suspect]
     Active Substance: SULFAMETHOXAZOLE\TRIMETHOPRIM
     Indication: Antibiotic prophylaxis
     Dosage: UNK
  16. COTRIMOXAZOLE [Suspect]
     Active Substance: SULFAMETHOXAZOLE\TRIMETHOPRIM
     Indication: Encephalitis cytomegalovirus

REACTIONS (15)
  - Encephalitis cytomegalovirus [Fatal]
  - Brain death [Fatal]
  - Exposure during pregnancy [Fatal]
  - Neurological decompensation [Unknown]
  - Hydrocephalus [Unknown]
  - Brain oedema [Unknown]
  - Disseminated cytomegaloviral infection [Unknown]
  - Cerebral haemorrhage [Unknown]
  - Central nervous system necrosis [Unknown]
  - Cerebral venous thrombosis [Unknown]
  - Intracranial pressure increased [Unknown]
  - Hemiparesis [Unknown]
  - Condition aggravated [Unknown]
  - Headache [Unknown]
  - Live birth [Unknown]
